FAERS Safety Report 9661102 (Version 1)
Quarter: 2013Q4

REPORT INFORMATION
  Report Type: Spontaneous
  Country: KR (occurrence: KR)
  Receive Date: 20131031
  Receipt Date: 20131031
  Transmission Date: 20140711
  Serious: Yes (Death)
  Sender: FDA-Public Use
  Company Number: KR-JNJFOC-20131018338

PATIENT
  Sex: Male

DRUGS (4)
  1. FINIBAX [Suspect]
     Indication: PNEUMONIA
     Route: 041
     Dates: start: 20130729, end: 20130731
  2. FINIBAX [Suspect]
     Indication: PNEUMONIA
     Route: 041
     Dates: start: 20130801
  3. FINIBAX [Suspect]
     Indication: PNEUMONIA
     Route: 041
     Dates: start: 20130719, end: 20130728
  4. TARGOCID [Concomitant]
     Indication: PNEUMONIA
     Route: 065
     Dates: start: 20130719, end: 20130801

REACTIONS (3)
  - Sepsis [Fatal]
  - Haematuria [Unknown]
  - Metastases to pelvis [Unknown]
